FAERS Safety Report 14967532 (Version 1)
Quarter: 2018Q2

REPORT INFORMATION
  Report Type: Spontaneous
  Country: US (occurrence: US)
  Receive Date: 20180511
  Receipt Date: 20180511
  Transmission Date: 20180711
  Serious: No
  Sender: FDA-Public Use
  Company Number: None

PATIENT
  Age: 53 Year
  Sex: Male

DRUGS (1)
  1. COTELLIC [Suspect]
     Active Substance: COBIMETINIB
     Indication: MALIGNANT MELANOMA
     Dosage: 3 TABS BY MOUTH TAKE X 21 DAYS OF 28 DAY CYCLE
     Route: 048
     Dates: start: 20180427, end: 20180510

REACTIONS (4)
  - Lip swelling [None]
  - Pyrexia [None]
  - Rash [None]
  - Oropharyngeal pain [None]

NARRATIVE: CASE EVENT DATE: 20180511
